FAERS Safety Report 9109316 (Version 2)
Quarter: 2013Q1

REPORT INFORMATION
  Report Type: Spontaneous
  Country: BR (occurrence: BR)
  Receive Date: 20130222
  Receipt Date: 20130327
  Transmission Date: 20140127
  Serious: Yes (Hospitalization, Other)
  Sender: FDA-Public Use
  Company Number: PHHY2013BR017278

PATIENT
  Sex: Female

DRUGS (4)
  1. SANDOSTATIN LAR (PATIENT BASIS) [Suspect]
     Indication: ACROMEGALY
     Dosage: 15 MG, PER MONTH
     Route: 030
  2. SANDOSTATIN LAR (PATIENT BASIS) [Suspect]
     Dosage: 30 MG, EACH 21 DAYS
     Route: 030
  3. ANALGESICS [Concomitant]
     Indication: PAIN
  4. HORMONES [Concomitant]

REACTIONS (9)
  - Cholelithiasis [Recovering/Resolving]
  - Osteoporosis [Recovering/Resolving]
  - Tinnitus [Recovering/Resolving]
  - Hearing impaired [Recovering/Resolving]
  - Arthritis [Recovering/Resolving]
  - Osteoarthritis [Recovering/Resolving]
  - Glucose tolerance impaired [Recovering/Resolving]
  - Hypertension [Recovering/Resolving]
  - Pain [Recovering/Resolving]
